FAERS Safety Report 14136213 (Version 2)
Quarter: 2018Q1

REPORT INFORMATION
  Report Type: Report from Study
  Country: US (occurrence: US)
  Receive Date: 20171026
  Receipt Date: 20180123
  Transmission Date: 20180508
  Serious: No
  Sender: FDA-Public Use
  Company Number: US-AMGEN-USASL2017133938

PATIENT
  Age: 62 Year
  Sex: Male
  Weight: 90.39 kg

DRUGS (1)
  1. REPATHA [Suspect]
     Active Substance: EVOLOCUMAB
     Indication: HYPERCHOLESTEROLAEMIA
     Dosage: 420 MG/ML, QMO
     Route: 065
     Dates: start: 20170522

REACTIONS (5)
  - Malaise [Recovering/Resolving]
  - Back pain [Recovering/Resolving]
  - Gastrointestinal disorder [Recovering/Resolving]
  - Myalgia [Recovering/Resolving]
  - Pain [Recovering/Resolving]

NARRATIVE: CASE EVENT DATE: 20170531
